FAERS Safety Report 9007080 (Version 1)
Quarter: 2013Q1

REPORT INFORMATION
  Report Type: Spontaneous
  Country: US (occurrence: US)
  Receive Date: 20130110
  Receipt Date: 20130110
  Transmission Date: 20140127
  Serious: No
  Sender: FDA-Public Use
  Company Number: US-TEVA-377602USA

PATIENT
  Age: 76 Year
  Sex: Male
  Weight: 73.55 kg

DRUGS (2)
  1. QNASL [Suspect]
     Indication: RHINORRHOEA
     Dosage: 160 MICROGRAM DAILY;
     Route: 045
     Dates: start: 20121212, end: 20121219
  2. ASPIRIN [Concomitant]
     Route: 048

REACTIONS (1)
  - Rhinorrhoea [Not Recovered/Not Resolved]
